FAERS Safety Report 9682017 (Version 5)
Quarter: 2014Q1

REPORT INFORMATION
  Report Type: Spontaneous
  Country: FR (occurrence: FR)
  Receive Date: 20131111
  Receipt Date: 20140115
  Transmission Date: 20141002
  Serious: Yes (Hospitalization)
  Sender: FDA-Public Use
  Company Number: FR-PFIZER INC-2013314495

PATIENT
  Age: 75 Year
  Sex: Female

DRUGS (4)
  1. CAMPTO [Suspect]
     Indication: ADENOCARCINOMA OF COLON
     Dosage: 300 MG, CYCLIC
     Route: 042
     Dates: start: 20130604, end: 20130604
  2. XELODA [Suspect]
     Indication: ADENOCARCINOMA OF COLON
     Dosage: 3 DF 2X/DAY (CORRESPONDING TO 3G)
     Route: 048
     Dates: start: 20130604, end: 20130617
  3. XELODA [Suspect]
     Dosage: 3 DF 2X/DAY (CORRESPONDING TO 3G)
     Route: 048
     Dates: start: 20130625, end: 20130708
  4. AVASTIN [Suspect]
     Indication: ADENOCARCINOMA OF COLON
     Dosage: 440 MG, CYCLIC
     Route: 042
     Dates: start: 20130604, end: 20130604

REACTIONS (3)
  - Ileal fistula [Not Recovered/Not Resolved]
  - Anal fistula [Not Recovered/Not Resolved]
  - Diarrhoea [Not Recovered/Not Resolved]
